FAERS Safety Report 21800603 (Version 2)
Quarter: 2023Q1

REPORT INFORMATION
  Report Type: Spontaneous
  Country: US (occurrence: US)
  Receive Date: 20221230
  Receipt Date: 20230123
  Transmission Date: 20230418
  Serious: Yes (Other)
  Sender: FDA-Public Use
  Company Number: US-BAYER-2022P033179

PATIENT
  Age: 13 Year
  Sex: Male

DRUGS (1)
  1. KOGENATE FS [Suspect]
     Active Substance: ANTIHEMOPHILIC FACTOR, HUMAN RECOMBINANT
     Dosage: UNK
     Route: 042

REACTIONS (5)
  - Fall [None]
  - Joint swelling [None]
  - Joint injury [None]
  - Skin injury [None]
  - Haemorrhage [None]

NARRATIVE: CASE EVENT DATE: 20221223
